FAERS Safety Report 6740827-4 (Version None)
Quarter: 2010Q2

REPORT INFORMATION
  Report Type: 
  Country: None (occurrence: None)
  Receive Date: 20100525
  Receipt Date: 20100525
  Transmission Date: 20101027
  Serious: Yes (Hospitalization)
  Sender: FDA-Public Use
  Company Number: None

PATIENT
  Age: 67 Year
  Sex: Male

DRUGS (1)
  1. FERAHEME [Suspect]
     Indication: IRON DEFICIENCY ANAEMIA
     Dosage: 510MG ONCE IV BOLUS
     Route: 040
     Dates: start: 20100520, end: 20100520

REACTIONS (11)
  - ABDOMINAL PAIN [None]
  - COUGH [None]
  - CYANOSIS [None]
  - DRUG INTOLERANCE [None]
  - DYSPNOEA [None]
  - ERYTHEMA [None]
  - FEELING ABNORMAL [None]
  - FLUSHING [None]
  - HYPERHIDROSIS [None]
  - OXYGEN SATURATION DECREASED [None]
  - PRODUCT SUBSTITUTION ISSUE [None]
